FAERS Safety Report 23304603 (Version 1)
Quarter: 2023Q4

REPORT INFORMATION
  Report Type: Report from Study
  Country: ES (occurrence: ES)
  Receive Date: 20231218
  Receipt Date: 20231218
  Transmission Date: 20240110
  Serious: Yes (Other)
  Sender: FDA-Public Use
  Company Number: ES-Accord-396094

PATIENT

DRUGS (1)
  1. METHOTREXATE [Suspect]
     Active Substance: METHOTREXATE
     Indication: Neoplasm malignant

REACTIONS (4)
  - Neurotoxicity [Recovered/Resolved]
  - Irritability [Unknown]
  - Consciousness fluctuating [Unknown]
  - Off label use [Unknown]
